FAERS Safety Report 10192020 (Version 2)
Quarter: 2014Q2

REPORT INFORMATION
  Report Type: Spontaneous
  Country: AR (occurrence: AR)
  Receive Date: 20140523
  Receipt Date: 20140523
  Transmission Date: 20141212
  Serious: Yes (Other)
  Sender: FDA-Public Use
  Company Number: AR-PFIZER INC-2014106517

PATIENT
  Age: 80 Year
  Sex: Male

DRUGS (1)
  1. SUTENT [Suspect]
     Indication: METASTATIC RENAL CELL CARCINOMA
     Dosage: CYCLIC (14 DAYS ON AND 7 DAYS OFF)
     Dates: start: 20131205

REACTIONS (4)
  - Bone marrow toxicity [Unknown]
  - Pulmonary mass [Unknown]
  - Adrenal mass [Unknown]
  - Hepatotoxicity [Unknown]
